FAERS Safety Report 6823053-X (Version None)
Quarter: 2010Q3

REPORT INFORMATION
  Report Type: 
  Country: None (occurrence: None)
  Receive Date: 20100708
  Receipt Date: 20100705
  Transmission Date: 20110219
  Serious: Yes (Hospitalization)
  Sender: FDA-Public Use
  Company Number: B0663551A

PATIENT
  Sex: Male
  Weight: 88 kg

DRUGS (4)
  1. ARIXTRA [Suspect]
     Indication: THROMBOPHLEBITIS SUPERFICIAL
     Route: 058
     Dates: start: 20100602
  2. BIPROFENID [Suspect]
     Indication: INFLAMMATION
     Route: 048
     Dates: start: 20100604, end: 20100605
  3. MOPRAL [Suspect]
     Indication: PROPHYLAXIS AGAINST GASTROINTESTINAL ULCER
     Route: 048
     Dates: start: 20100604, end: 20100605
  4. PYOSTACINE [Suspect]
     Route: 048
     Dates: start: 20100604, end: 20100605

REACTIONS (1)
  - AGRANULOCYTOSIS [None]
